FAERS Safety Report 14578284 (Version 1)
Quarter: 2018Q1

REPORT INFORMATION
  Report Type: Spontaneous
  Country: US (occurrence: US)
  Receive Date: 20180227
  Receipt Date: 20180227
  Transmission Date: 20180509
  Serious: No
  Sender: FDA-Public Use
  Company Number: US-BAYER-2018-034015

PATIENT
  Age: 28 Year
  Sex: Female
  Weight: 90 kg

DRUGS (2)
  1. MIDOL EXTENDED RELIEF [Suspect]
     Active Substance: NAPROXEN SODIUM
     Indication: PAIN
     Dosage: UNK
     Route: 048
  2. MIDOL COMPLETE [Suspect]
     Active Substance: ACETAMINOPHEN\CAFFEINE\PYRILAMINE MALEATE
     Indication: PAIN
     Dosage: UNK
     Route: 048
     Dates: start: 20180219, end: 20180219

REACTIONS (4)
  - Thinking abnormal [Not Recovered/Not Resolved]
  - Drug ineffective [Unknown]
  - Feeling abnormal [Not Recovered/Not Resolved]
  - Wrong technique in product usage process [Unknown]

NARRATIVE: CASE EVENT DATE: 20180219
